FAERS Safety Report 23750945 (Version 1)
Quarter: 2024Q2

REPORT INFORMATION
  Report Type: Spontaneous
  Country: CA (occurrence: CA)
  Receive Date: 20240417
  Receipt Date: 20240417
  Transmission Date: 20240715
  Serious: Yes (Other)
  Sender: FDA-Public Use
  Company Number: CA-AUROBINDO-AUR-APL-2024-017219

PATIENT
  Age: 51 Year
  Sex: Male

DRUGS (2)
  1. MILRINONE LACTATE [Suspect]
     Active Substance: MILRINONE LACTATE
     Indication: Cardiac failure
     Dosage: UNK, 0.50 ?G/KG/MIN
     Route: 065
  2. MILRINONE LACTATE [Suspect]
     Active Substance: MILRINONE LACTATE
     Indication: Cardiogenic shock

REACTIONS (1)
  - Drug ineffective [Unknown]
